FAERS Safety Report 9396325 (Version 1)
Quarter: 2013Q3

REPORT INFORMATION
  Report Type: Spontaneous
  Country: US (occurrence: US)
  Receive Date: 20130711
  Receipt Date: 20130711
  Transmission Date: 20140515
  Serious: Yes (Other)
  Sender: FDA-Public Use
  Company Number: US-BAXTER-2013BAX026063

PATIENT
  Age: 2 Year
  Sex: Female
  Weight: 11.5 kg

DRUGS (2)
  1. GAMMAGARD LIQUID [Suspect]
     Indication: ACUTE DISSEMINATED ENCEPHALOMYELITIS
     Route: 065
  2. GAMMAGARD LIQUID [Suspect]
     Indication: OFF LABEL USE

REACTIONS (1)
  - Drug ineffective [Not Recovered/Not Resolved]
